FAERS Safety Report 16449020 (Version 1)
Quarter: 2019Q2

REPORT INFORMATION
  Report Type: Spontaneous
  Country: HR (occurrence: HR)
  Receive Date: 20190619
  Receipt Date: 20190619
  Transmission Date: 20190711
  Serious: Yes (Other)
  Sender: FDA-Public Use
  Company Number: HR-TEVA-2019-HR-1063940

PATIENT
  Age: 16 Year
  Sex: Male

DRUGS (10)
  1. SANVAL [Suspect]
     Active Substance: ZOLPIDEM TARTRATE
     Route: 048
     Dates: start: 20190220, end: 20190220
  2. NORMABEL [Suspect]
     Active Substance: DIAZEPAM
     Route: 048
     Dates: start: 20190220, end: 20190220
  3. PREGABALIN. [Suspect]
     Active Substance: PREGABALIN
     Route: 048
     Dates: start: 20190220, end: 20190220
  4. COCAINE [Suspect]
     Active Substance: COCAINE
     Dates: start: 20190220, end: 20190220
  5. SERPENTIL [ESCITALOPRAM OXALATE] [Suspect]
     Active Substance: ESCITALOPRAM OXALATE
     Route: 048
     Dates: start: 20190220, end: 20190220
  6. KVENTIAX [Suspect]
     Active Substance: QUETIAPINE FUMARATE
     Route: 048
     Dates: start: 20190220, end: 20190220
  7. MARIJUANA [Suspect]
     Active Substance: CANNABIS SATIVA SUBSP. INDICA TOP
     Dates: start: 20190220, end: 20190220
  8. MISAR (ALPRAZOLAM) [Suspect]
     Active Substance: ALPRAZOLAM
     Route: 048
     Dates: start: 20190220, end: 20190220
  9. SUBUTEX [Suspect]
     Active Substance: BUPRENORPHINE HYDROCHLORIDE
     Route: 048
     Dates: start: 20190220, end: 20190220
  10. XANAX [Suspect]
     Active Substance: ALPRAZOLAM
     Route: 048
     Dates: start: 20190220, end: 20190220

REACTIONS (4)
  - Agitation [Unknown]
  - Drug abuse [Unknown]
  - Bradycardia [Unknown]
  - Blood potassium increased [Unknown]

NARRATIVE: CASE EVENT DATE: 201902
